FAERS Safety Report 24458679 (Version 1)
Quarter: 2024Q4

REPORT INFORMATION
  Report Type: Spontaneous
  Country: US (occurrence: US)
  Receive Date: 20241018
  Receipt Date: 20241018
  Transmission Date: 20250115
  Serious: No
  Sender: DERMAVANT SCIENCES, INC.
  Company Number: US-Dermavant-001287

PATIENT
  Age: 37 Year
  Sex: Female

DRUGS (4)
  1. VTAMA [Suspect]
     Active Substance: TAPINAROF
     Indication: Psoriasis
     Route: 061
     Dates: start: 202408, end: 202408
  2. RISPERIDONE [Concomitant]
     Active Substance: RISPERIDONE
  3. VENLAFAXINE [Concomitant]
     Active Substance: VENLAFAXINE HYDROCHLORIDE
  4. BENZTROPINE [Concomitant]
     Active Substance: BENZTROPINE

REACTIONS (3)
  - Nausea [Recovered/Resolved]
  - Headache [Recovered/Resolved]
  - Vomiting [Recovered/Resolved]

NARRATIVE: CASE EVENT DATE: 20240801
